FAERS Safety Report 4609744-X (Version None)
Quarter: 2005Q1

REPORT INFORMATION
  Report Type: 
  Country: None (occurrence: None)
  Receive Date: 20050314
  Receipt Date: 20040722
  Transmission Date: 20050727
  Serious: No
  Sender: FDA-Public Use
  Company Number: 8564

PATIENT
  Age: 76 Year
  Sex: Female

DRUGS (7)
  1. ACYCLOVIR [Suspect]
     Indication: HERPES ZOSTER
     Dosage: 800 MG OTH, PO
     Route: 048
     Dates: start: 20040712, end: 20040714
  2. PROCHLORPERAZINE [Concomitant]
  3. CO-CODAMOL [Concomitant]
  4. CARBAMAZEPINE [Concomitant]
  5. CLOPIDOGREL [Concomitant]
  6. CELECOXIB [Concomitant]
  7. RANITIDINE [Concomitant]

REACTIONS (3)
  - ASTHENIA [None]
  - DYSARTHRIA [None]
  - VOMITING [None]
